FAERS Safety Report 8611488-4 (Version None)
Quarter: 2012Q3

REPORT INFORMATION
  Report Type: 
  Country: None (occurrence: None)
  Receive Date: 20120809
  Receipt Date: 20120725
  Transmission Date: 20120928
  Serious: Yes (Death, Hospitalization, Other)
  Sender: FDA-Public Use
  Company Number: 2012MA009092

PATIENT
  Age: 47 Year
  Sex: Female

DRUGS (3)
  1. HYDROMORPHONE HCL [Suspect]
     Dosage: PO
     Route: 048
  2. KADIAN [Suspect]
     Dosage: PO
     Route: 048
  3. DRY CELL BATTERIES [Suspect]
     Dosage: PO
     Route: 048

REACTIONS (6)
  - PUPIL FIXED [None]
  - INTESTINAL PERFORATION [None]
  - SEPTIC SHOCK [None]
  - ACCIDENTAL DEATH [None]
  - HYPOTENSION [None]
  - UNRESPONSIVE TO STIMULI [None]
